FAERS Safety Report 11925811 (Version 1)
Quarter: 2016Q1

REPORT INFORMATION
  Report Type: Spontaneous
  Country: CN (occurrence: CN)
  Receive Date: 20160118
  Receipt Date: 20160118
  Transmission Date: 20160526
  Serious: Yes (Hospitalization, Other)
  Sender: FDA-Public Use
  Company Number: CN-MACLEODS PHARMACEUTICALS US LTD-MAC2016002342

PATIENT

DRUGS (5)
  1. ACETYLSALICYLIC ACID [Concomitant]
     Active Substance: ASPIRIN
     Indication: ANTIPLATELET THERAPY
     Dosage: 300 MG, DAILY
     Route: 048
  2. TIROFIBAN [Concomitant]
     Active Substance: TIROFIBAN
     Dosage: 0.15 ?G/KG/MIN AS CONTINUOUS INFUSION FOR ABOUT 36 HR
     Route: 042
  3. CLOPIDOGREL [Suspect]
     Active Substance: CLOPIDOGREL BISULFATE
     Dosage: 75 MG, BID
     Route: 048
  4. CLOPIDOGREL [Suspect]
     Active Substance: CLOPIDOGREL BISULFATE
     Indication: ANTIPLATELET THERAPY
     Dosage: 75 MG, QD
     Route: 048
  5. TIROFIBAN [Concomitant]
     Active Substance: TIROFIBAN
     Indication: ANTIPLATELET THERAPY
     Dosage: 0.4 ?G/KG, FOR 30 MIN
     Route: 042

REACTIONS (4)
  - Drug ineffective [Recovered/Resolved]
  - Vascular stent thrombosis [Recovered/Resolved]
  - Disease recurrence [Recovered/Resolved]
  - Chest pain [Recovered/Resolved]
